FAERS Safety Report 7078968-7 (Version None)
Quarter: 2010Q4

REPORT INFORMATION
  Report Type: 
  Country: None (occurrence: None)
  Receive Date: 20101102
  Receipt Date: 20101022
  Transmission Date: 20110411
  Serious: No
  Sender: FDA-Public Use
  Company Number: US-JNJFOC-20101006951

PATIENT
  Sex: Female
  Weight: 56.7 kg

DRUGS (2)
  1. FENTANYL CITRATE [Suspect]
     Indication: ARTHRITIS
     Route: 062
  2. LIPITOR [Concomitant]
     Indication: BLOOD CHOLESTEROL INCREASED
     Route: 048

REACTIONS (1)
  - DRUG DISPENSING ERROR [None]
